FAERS Safety Report 6686710-4 (Version None)
Quarter: 2010Q2

REPORT INFORMATION
  Report Type: 
  Country: None (occurrence: None)
  Receive Date: 20100416
  Receipt Date: 20100416
  Transmission Date: 20101027
  Serious: No
  Sender: FDA-Public Use
  Company Number: None

PATIENT
  Age: 68 Year
  Sex: Female
  Weight: 63.5036 kg

DRUGS (2)
  1. ROPINIROLE 5 MG CORE PHARMA [Suspect]
     Indication: PARKINSON'S DISEASE
     Dosage: 5 MG TID ORAL
     Route: 048
     Dates: start: 20100301, end: 20100314
  2. ROPINIROLE 5 MG CORE PHARMA [Suspect]
     Indication: PARKINSON'S DISEASE
     Dosage: 5 MG TID ORAL
     Route: 048
     Dates: start: 20100322

REACTIONS (2)
  - FATIGUE [None]
  - HYPERSOMNIA [None]
